FAERS Safety Report 14900366 (Version 1)
Quarter: 2018Q2

REPORT INFORMATION
  Report Type: Spontaneous
  Country: US (occurrence: US)
  Receive Date: 20180429
  Receipt Date: 20180429
  Transmission Date: 20180711
  Serious: No
  Sender: FDA-Public Use
  Company Number: None

PATIENT
  Age: 31 Year
  Sex: Male
  Weight: 83.25 kg

DRUGS (5)
  1. DEXTROAMPHET SACCHARAT, AMPHET ASPARTATE, DEXTROAMPHET SULFATE AND AMPHET SULFAT [Suspect]
     Active Substance: AMPHETAMINE ASPARTATE\AMPHETAMINE SULFATE\DEXTROAMPHETAMINE SACCHARATE\DEXTROAMPHETAMINE SULFATE
     Indication: ATTENTION DEFICIT/HYPERACTIVITY DISORDER
     Dosage: ?          QUANTITY:1 TABLET(S);?
     Route: 048
  2. GABAPENTIN 800MG FOUR TIMES DAILY [Concomitant]
  3. BUSPIRONE 30MG TWICE DAILY [Concomitant]
  4. CLONIDINE. [Concomitant]
     Active Substance: CLONIDINE
  5. SERTRALINE 100MG DAILY [Concomitant]

REACTIONS (5)
  - Feeling cold [None]
  - Wound [None]
  - Skin discolouration [None]
  - Impaired healing [None]
  - Scratch [None]

NARRATIVE: CASE EVENT DATE: 20160401
